FAERS Safety Report 21807494 (Version 3)
Quarter: 2023Q1

REPORT INFORMATION
  Report Type: Report from Study
  Country: US (occurrence: US)
  Receive Date: 20230102
  Receipt Date: 20230117
  Transmission Date: 20230417
  Serious: Yes (Death, Hospitalization, Other)
  Sender: FDA-Public Use
  Company Number: US-ABBVIE-4255050

PATIENT
  Sex: Male
  Weight: 71.7 kg

DRUGS (1)
  1. IMBRUVICA [Suspect]
     Active Substance: IBRUTINIB
     Indication: Chronic lymphocytic leukaemia
     Route: 048
     Dates: start: 20220305, end: 20221224

REACTIONS (9)
  - Respiratory failure [Fatal]
  - COVID-19 pneumonia [Fatal]
  - Fall [Not Recovered/Not Resolved]
  - COVID-19 [Fatal]
  - Hand fracture [Recovered/Resolved]
  - Dysphagia [Not Recovered/Not Resolved]
  - Balance disorder [Not Recovered/Not Resolved]
  - Haemorrhage [Unknown]
  - Skin laceration [Unknown]

NARRATIVE: CASE EVENT DATE: 20220101
